FAERS Safety Report 4340479-7 (Version None)
Quarter: 2004Q2

REPORT INFORMATION
  Report Type: 
  Country: None (occurrence: None)
  Receive Date: 20040414
  Receipt Date: 20040406
  Transmission Date: 20050107
  Serious: Yes (Death)
  Sender: FDA-Public Use
  Company Number: 200410191BYL

PATIENT
  Sex: Female

DRUGS (2)
  1. CIPROFLOXACIN [Suspect]
  2. FIRSTCIN [Concomitant]

REACTIONS (1)
  - RENAL FAILURE [None]
